FAERS Safety Report 24155777 (Version 3)
Quarter: 2024Q3

REPORT INFORMATION
  Report Type: Report from Study
  Country: IE (occurrence: IE)
  Receive Date: 20240731
  Receipt Date: 20240813
  Transmission Date: 20241016
  Serious: Yes (Other)
  Sender: ROCHE
  Company Number: IE-ROCHE-10000042357

PATIENT
  Sex: Female

DRUGS (2)
  1. OCREVUS [Suspect]
     Active Substance: OCRELIZUMAB
     Indication: Primary progressive multiple sclerosis
     Route: 042
  2. KEFLEX [Concomitant]
     Active Substance: CEPHALEXIN

REACTIONS (4)
  - Urinary tract infection [Not Recovered/Not Resolved]
  - Nasopharyngitis [Recovered/Resolved]
  - Influenza [Unknown]
  - Malaise [Not Recovered/Not Resolved]

NARRATIVE: CASE EVENT DATE: 20240301
